FAERS Safety Report 14802759 (Version 1)
Quarter: 2018Q2

REPORT INFORMATION
  Report Type: Spontaneous
  Country: FR (occurrence: FR)
  Receive Date: 20180424
  Receipt Date: 20180424
  Transmission Date: 20180711
  Serious: Yes (Other)
  Sender: FDA-Public Use
  Company Number: FR-PFIZER INC-2018162466

PATIENT
  Age: 69 Year
  Sex: Male

DRUGS (1)
  1. NIPENT [Suspect]
     Active Substance: PENTOSTATIN
     Indication: LEUKAEMIA
     Dosage: UNK, EVERY 15 DAYS

REACTIONS (4)
  - Subacute combined cord degeneration [Unknown]
  - Photosensitivity reaction [Unknown]
  - Pyrexia [Unknown]
  - Myelitis [Unknown]

NARRATIVE: CASE EVENT DATE: 201802
